FAERS Safety Report 5134998-3 (Version None)
Quarter: 2006Q4

REPORT INFORMATION
  Report Type: 
  Country: None (occurrence: None)
  Receive Date: 20060831
  Receipt Date: 20060519
  Transmission Date: 20070319
  Serious: No
  Sender: FDA-Public Use
  Company Number: 2006-BP-01435BP

PATIENT
  Age: 83 Year
  Sex: Female

DRUGS (11)
  1. SPIRIVA [Suspect]
     Indication: CHRONIC OBSTRUCTIVE PULMONARY DISEASE
     Dosage: 18 (18 MCG),IH
     Route: 055
     Dates: start: 20050101
  2. SPIRIVA [Suspect]
  3. ADVAIR DISKUS 100/50 [Concomitant]
  4. FOSAMAX [Concomitant]
  5. DILTIAZEM HCL [Concomitant]
  6. LISINOPRIL [Concomitant]
  7. CLONOPIN [Concomitant]
  8. POTASSIUM ACETATE [Concomitant]
  9. PROZAC [Concomitant]
  10. ATARAX [Concomitant]
  11. FLORINEF [Concomitant]

REACTIONS (1)
  - DYSPNOEA [None]
